FAERS Safety Report 23874129 (Version 1)
Quarter: 2024Q2

REPORT INFORMATION
  Report Type: Spontaneous
  Country: DE (occurrence: DE)
  Receive Date: 20240520
  Receipt Date: 20240520
  Transmission Date: 20240716
  Serious: Yes (Other)
  Sender: FDA-Public Use
  Company Number: DE-002147023-NVSC2024DE101859

PATIENT
  Age: 74 Year
  Sex: Female

DRUGS (4)
  1. TRILEPTAL [Suspect]
     Active Substance: OXCARBAZEPINE
     Indication: Epilepsy
     Dosage: 300 MG (1 ? 0 ? 1)
     Route: 065
     Dates: start: 200201
  2. TRILEPTAL [Suspect]
     Active Substance: OXCARBAZEPINE
     Dosage: 600 MG (1 - 0 - 0)
     Route: 065
  3. AMLODIPINE [Suspect]
     Active Substance: AMLODIPINE BESYLATE
     Indication: Hypertension
     Route: 065
  4. NITRENDIPINE [Concomitant]
     Active Substance: NITRENDIPINE
     Indication: Product used for unknown indication
     Dosage: UNK (AS NEEDED)
     Route: 065

REACTIONS (7)
  - Hyponatraemia [Recovering/Resolving]
  - Hypertensive crisis [Unknown]
  - Seizure [Unknown]
  - Inappropriate schedule of product administration [Recovered/Resolved]
  - Weight increased [Unknown]
  - Oedema [Unknown]
  - Off label use [Not Recovered/Not Resolved]

NARRATIVE: CASE EVENT DATE: 20020101
